FAERS Safety Report 7624863-1 (Version None)
Quarter: 2011Q3

REPORT INFORMATION
  Report Type: 
  Country: None (occurrence: None)
  Receive Date: 20110720
  Receipt Date: 20081112
  Transmission Date: 20111222
  Serious: Yes (Other)
  Sender: FDA-Public Use
  Company Number: DE-GENENTECH-321684

PATIENT
  Age: 86 Year
  Sex: Female

DRUGS (1)
  1. LUCENTIS [Suspect]
     Indication: AGE-RELATED MACULAR DEGENERATION
     Dosage: UNK
     Route: 031
     Dates: start: 20081006

REACTIONS (8)
  - RETINAL DETACHMENT [None]
  - EYE DISORDER [None]
  - INFLUENZA [None]
  - VISUAL IMPAIRMENT [None]
  - OCULAR HYPERAEMIA [None]
  - HEADACHE [None]
  - NASOPHARYNGITIS [None]
  - EYE PAIN [None]
